FAERS Safety Report 16595160 (Version 2)
Quarter: 2019Q3

REPORT INFORMATION
  Report Type: Report from Study
  Country: US (occurrence: US)
  Receive Date: 20190718
  Receipt Date: 20190731
  Transmission Date: 20191004
  Serious: Yes (Hospitalization)
  Sender: FDA-Public Use
  Company Number: US-BAXTER-2019BAX013717

PATIENT
  Age: 8 Year
  Sex: Male
  Weight: 57 kg

DRUGS (18)
  1. METHOTREXATE. [Suspect]
     Active Substance: METHOTREXATE
     Dosage: LAST DOSE PRIOR TO SERIOUS ADVERSE EVENT (SAE) FEBRILE NEUTROPENIA
     Route: 037
     Dates: start: 20190425, end: 20190425
  2. CYCLOPHOSPHAMIDE FOR INJECTION, USP [Suspect]
     Active Substance: CYCLOPHOSPHAMIDE
     Indication: ACUTE LYMPHOCYTIC LEUKAEMIA
     Dosage: FIRST DOSE
     Route: 042
     Dates: start: 20181120
  3. CYCLOPHOSPHAMIDE FOR INJECTION, USP [Suspect]
     Active Substance: CYCLOPHOSPHAMIDE
     Dosage: LAST DOSE PRIOR TO THE SAES OF RECTAL HEMORRHAGE, PLATELET COUNT DECREASED AND NEUTROPENIA
     Route: 042
     Dates: start: 20190523, end: 20190523
  4. INCB018424 [Suspect]
     Active Substance: RUXOLITINIB
     Indication: ACUTE LYMPHOCYTIC LEUKAEMIA
     Dosage: TABLET, FIRST DOSE
     Route: 048
     Dates: start: 20181120
  5. METHOTREXATE. [Suspect]
     Active Substance: METHOTREXATE
     Dosage: LAST DOSE OF PRIOR TO THE SAES OF RECTAL HEMORRHAGE, PLATELET COUNT DECREASED AND NEUTROPENIA
     Route: 037
     Dates: start: 20190530, end: 20190530
  6. INCB018424 [Suspect]
     Active Substance: RUXOLITINIB
     Dosage: TABLET, LAST DOSE PRIOR TO THE SAE FEBRILE NEUTROPENIA
     Route: 048
     Dates: start: 20190508, end: 20190508
  7. DOXORUBICIN [Suspect]
     Active Substance: DOXORUBICIN
     Indication: ACUTE LYMPHOCYTIC LEUKAEMIA
     Dosage: FIRST DOSE
     Route: 042
     Dates: start: 20190502
  8. METHOTREXATE. [Suspect]
     Active Substance: METHOTREXATE
     Indication: ACUTE LYMPHOCYTIC LEUKAEMIA
     Dosage: FIRST DOSE
     Route: 037
     Dates: start: 20190214
  9. MERCAPTOPURINE. [Suspect]
     Active Substance: MERCAPTOPURINE
     Dosage: LAST DOSE PRIOR TO THE SAE OF FEBRILE NEUTROPENIA
     Route: 048
     Dates: start: 20190429, end: 20190429
  10. THIOGUANINE [Suspect]
     Active Substance: THIOGUANINE
     Dosage: LAST DOSE PRIOR TO THE SAES OF RECTAL HEMORRHAGE, PLATELET COUNT DECREASED AND NEUTROPENIA
     Route: 048
     Dates: start: 20190604, end: 20190604
  11. CYTARABINE. [Suspect]
     Active Substance: CYTARABINE
     Indication: ACUTE LYMPHOCYTIC LEUKAEMIA
     Dosage: FIRST DOSE
     Route: 042
     Dates: start: 20181120
  12. VINCRISTINE [Suspect]
     Active Substance: VINCRISTINE
     Indication: ACUTE LYMPHOCYTIC LEUKAEMIA
     Dosage: FIRST DOSE
     Route: 042
     Dates: start: 20181204
  13. MERCAPTOPURINE. [Suspect]
     Active Substance: MERCAPTOPURINE
     Indication: ACUTE LYMPHOCYTIC LEUKAEMIA
     Dosage: FIRST DOSE FOR INTERIM MAINTENANCE (IM)
     Route: 048
     Dates: start: 20190215
  14. THIOGUANINE [Suspect]
     Active Substance: THIOGUANINE
     Indication: ACUTE LYMPHOCYTIC LEUKAEMIA
     Dosage: FIRST DOSE
     Route: 048
     Dates: start: 20190523
  15. CYTARABINE. [Suspect]
     Active Substance: CYTARABINE
     Dosage: LAST DOSE PRIOR TO THE SAES OF RECTAL HEMORRHAGE, PLATELET COUNT DECREASED AND NEUTROPENIA
     Route: 042
     Dates: start: 20190602, end: 20190602
  16. VINCRISTINE [Suspect]
     Active Substance: VINCRISTINE
     Dosage: LAST DOSE PRIOR TO SAE OF FEBRILE NEUTROPENIA
     Route: 042
     Dates: start: 20190509, end: 20190509
  17. DOXORUBICIN [Suspect]
     Active Substance: DOXORUBICIN
     Dosage: LAST DOSE PRIOR TO SAE OF FEBRILE NEUTROPENIA
     Route: 042
     Dates: start: 20190509, end: 20190509
  18. INCB018424 [Suspect]
     Active Substance: RUXOLITINIB
     Dosage: TABLET, LAST DOSE PRIOR TO THE SAES OF RECTAL HEMORRHAGE, PLATELET COUNT DECREASED AND NEUTROPENIA
     Route: 048
     Dates: start: 20190604, end: 20190604

REACTIONS (4)
  - Neutropenia [Recovering/Resolving]
  - Rectal haemorrhage [Recovered/Resolved]
  - Platelet count decreased [Recovering/Resolving]
  - Febrile neutropenia [Recovered/Resolved]

NARRATIVE: CASE EVENT DATE: 20190517
